FAERS Safety Report 4332682-7 (Version None)
Quarter: 2004Q1

REPORT INFORMATION
  Report Type: 
  Country: None (occurrence: None)
  Receive Date: 20040330
  Receipt Date: 20040309
  Transmission Date: 20041129
  Serious: No
  Sender: FDA-Public Use
  Company Number: JP_040102530

PATIENT
  Age: 72 Year
  Sex: Female

DRUGS (3)
  1. VANCOMYCIN [Suspect]
     Indication: WOUND INFECTION STAPHYLOCOCCAL
     Dosage: 2000 MG
  2. VANCOMYCIN [Suspect]
     Indication: GASTROENTERITIS STAPHYLOCOCCAL
     Dosage: 2000 MG
  3. FLUCONAZOLE [Concomitant]

REACTIONS (4)
  - ABSCESS LIMB [None]
  - LIVER DISORDER [None]
  - POST PROCEDURAL COMPLICATION [None]
  - WOUND [None]
